FAERS Safety Report 9798377 (Version 1)
Quarter: 2014Q1

REPORT INFORMATION
  Report Type: Spontaneous
  Country: US (occurrence: US)
  Receive Date: 20140106
  Receipt Date: 20140106
  Transmission Date: 20141002
  Serious: No
  Sender: FDA-Public Use
  Company Number: US-MYLANLABS-2013S1026459

PATIENT
  Sex: Male

DRUGS (1)
  1. METOPROLOL SUCCINATE EXTENDED-RELEASE TABLETS USP [Suspect]
     Route: 048
     Dates: start: 201311

REACTIONS (2)
  - Urticaria [Not Recovered/Not Resolved]
  - Reaction to drug excipients [Not Recovered/Not Resolved]
